FAERS Safety Report 9847988 (Version 1)
Quarter: 2014Q1

REPORT INFORMATION
  Report Type: Spontaneous
  Country: US (occurrence: US)
  Receive Date: 20140128
  Receipt Date: 20140128
  Transmission Date: 20141002
  Serious: No
  Sender: FDA-Public Use
  Company Number: US-BIOGENIDEC-2014BI008249

PATIENT
  Sex: Male

DRUGS (2)
  1. TYSABRI [Suspect]
     Indication: MULTIPLE SCLEROSIS
     Route: 042
     Dates: start: 20080611, end: 20080611
  2. TYSABRI [Suspect]
     Indication: MULTIPLE SCLEROSIS
     Route: 042
     Dates: start: 20100402

REACTIONS (8)
  - Memory impairment [Unknown]
  - Pain in extremity [Unknown]
  - Cognitive disorder [Unknown]
  - Temperature intolerance [Unknown]
  - Gait disturbance [Unknown]
  - Balance disorder [Unknown]
  - Back disorder [Unknown]
  - Fatigue [Unknown]
